FAERS Safety Report 9561742 (Version 1)
Quarter: 2013Q3

REPORT INFORMATION
  Report Type: Spontaneous
  Country: GB (occurrence: None)
  Receive Date: 20130925
  Receipt Date: 20130925
  Transmission Date: 20140515
  Serious: Yes (Hospitalization)
  Sender: FDA-Public Use
  Company Number: FK201304341

PATIENT
  Sex: Male

DRUGS (1)
  1. GEMCITABINE [Suspect]
     Indication: HODGKIN^S DISEASE
     Dosage: 1000 MG/M2

REACTIONS (4)
  - Acute hepatic failure [None]
  - Hepatic encephalopathy [None]
  - Blood pH increased [None]
  - Idiosyncratic drug reaction [None]
